FAERS Safety Report 6502812-7 (Version None)
Quarter: 2009Q4

REPORT INFORMATION
  Report Type: 
  Country: None (occurrence: None)
  Receive Date: 20091217
  Receipt Date: 20091116
  Transmission Date: 20100525
  Serious: No
  Sender: FDA-Public Use
  Company Number: US-BAYER-200939634NA

PATIENT
  Sex: Female

DRUGS (1)
  1. ANGELIQ [Suspect]
     Indication: DRUG USE FOR UNKNOWN INDICATION
     Dosage: 0.5 MG DROSPIRENONE AND 1 MG OF ESTRADIOL
     Route: 048

REACTIONS (3)
  - ANXIETY [None]
  - CHEST PAIN [None]
  - VAGINAL HAEMORRHAGE [None]
